FAERS Safety Report 9806315 (Version 2)
Quarter: 2014Q1

REPORT INFORMATION
  Report Type: Spontaneous
  Country: IT (occurrence: None)
  Receive Date: 20140107
  Receipt Date: 20140130
  Transmission Date: 20141002
  Serious: Yes (Other)
  Sender: FDA-Public Use
  Company Number: SYM-2014-14588

PATIENT
  Age: 48 Year
  Sex: 0

DRUGS (4)
  1. FLUOROURACIL [Suspect]
     Indication: PANCREATIC CARCINOMA
     Dosage: EVERY CYCLE
     Route: 042
     Dates: start: 20130821, end: 20131025
  2. IRINOTECAN HYDROCHLORIDE [Suspect]
     Indication: PANCREATIC CARCINOMA
     Dosage: EVERY CYCLE
     Route: 042
     Dates: start: 20130821, end: 20131025
  3. OXALIPLATIN [Suspect]
     Indication: PANCREATIC CARCINOMA
     Dosage: EVERY CYCLE
     Route: 042
     Dates: start: 20130821, end: 20131025
  4. LEDERFOLIN (CALCIUM FOLINATE) (CALCIUM FOLINATE) [Concomitant]

REACTIONS (2)
  - Leukopenia [None]
  - Neutropenia [None]
